FAERS Safety Report 7294992-3 (Version None)
Quarter: 2011Q1

REPORT INFORMATION
  Report Type: 
  Country: None (occurrence: None)
  Receive Date: 20110216
  Receipt Date: 20110210
  Transmission Date: 20110831
  Serious: Yes (Death, Hospitalization)
  Sender: FDA-Public Use
  Company Number: JP-BAYER-2011-013153

PATIENT
  Sex: Male

DRUGS (13)
  1. ALBUMIN TANNATE [Concomitant]
     Dosage: 1G, TID
     Dates: start: 20101016, end: 20101019
  2. LOPERAMIDE [Concomitant]
     Dosage: 1 MG,2 IN 1 D
     Dates: start: 20101019
  3. SORAFENIB (RAF KINASE INHIBITOR) [Suspect]
     Indication: HEPATIC NEOPLASM MALIGNANT
     Dosage: 400 MG, BID
     Dates: start: 20101004, end: 20101221
  4. MOSAPRIDE [Concomitant]
     Indication: GASTRITIS
     Dosage: 2.5 MG, TID
  5. FUROSEMIDE [Concomitant]
     Indication: ASCITES
     Dosage: 20 MG, 1 IN 1 D)
     Dates: end: 20101205
  6. LOPERAMIDE [Concomitant]
     Indication: DIARRHOEA
     Dosage: 1 MG, 2 IN 1 D
     Dates: start: 20101012, end: 20101015
  7. MOSAPRIDE [Concomitant]
  8. OMEPRAZOLE [Concomitant]
     Indication: GASTRITIS
     Dosage: 20 MG, BID
  9. PROHEPARUM [Concomitant]
     Indication: HEPATIC CIRRHOSIS
     Dosage: 3 TABLET(1 TABLET,3 IN 1 D)
  10. MUCOPOLYSACCHARIDE POLYSULFURIC ACID ESTER [Concomitant]
     Indication: PROPHYLAXIS
     Dosage: UNK
     Route: 061
     Dates: start: 20101012
  11. SPIRONOLACTONE [Concomitant]
     Indication: ASCITES
     Dosage: 50 MG, 1 IN 1 D
     Dates: end: 20101205
  12. GLYCYRON [AMINOACETIC ACID,DL-METHIONINE,GLYCYRRHIZIC ACID] [Concomitant]
     Indication: HEPATIC CIRRHOSIS
     Dosage: 2 DF, TID
     Route: 048
  13. ALBUMIN TANNATE [Concomitant]
     Indication: DIARRHOEA
     Dosage: 1 G, TID
     Dates: start: 20100901, end: 20101011

REACTIONS (2)
  - HEPATIC FAILURE [None]
  - ASCITES [None]
